FAERS Safety Report 24608643 (Version 1)
Quarter: 2024Q4

REPORT INFORMATION
  Report Type: Spontaneous
  Country: US (occurrence: None)
  Receive Date: 20241111
  Receipt Date: 20241111
  Transmission Date: 20250115
  Serious: Yes (Other)
  Sender: Public
  Company Number: None

PATIENT
  Age: 48 Year
  Sex: Male
  Weight: 99.79 kg

DRUGS (1)
  1. HERBALS\MITRAGYNINE [Suspect]
     Active Substance: HERBALS\MITRAGYNINE

REACTIONS (11)
  - Cognitive disorder [None]
  - Drug withdrawal syndrome [None]
  - Substance use [None]
  - Nausea [None]
  - Vomiting [None]
  - Abdominal distension [None]
  - Constipation [None]
  - Irritability [None]
  - Tremor [None]
  - Night sweats [None]
  - Dependence [None]

NARRATIVE: CASE EVENT DATE: 20241110
